FAERS Safety Report 6130174-6 (Version None)
Quarter: 2009Q1

REPORT INFORMATION
  Report Type: 
  Country: None (occurrence: None)
  Receive Date: 20090324
  Receipt Date: 20090320
  Transmission Date: 20090719
  Serious: Yes (Life-Threatening, Hospitalization)
  Sender: FDA-Public Use
  Company Number: RU-BRISTOL-MYERS SQUIBB COMPANY-14555023

PATIENT
  Age: 70 Year
  Sex: Female

DRUGS (2)
  1. CARBOPLATIN [Suspect]
     Indication: NON-SMALL CELL LUNG CANCER
     Dosage: 1 DOSAGE FORM = 6 AUC, FIRST DOSE INITIATED ON 10-FEB-2009
     Route: 042
     Dates: start: 20090303, end: 20090303
  2. TAXOL [Suspect]
     Indication: NON-SMALL CELL LUNG CANCER
     Dosage: FIRST DOSE INITIATED ON 10-FEB-2009
     Route: 042
     Dates: start: 20090303, end: 20090303

REACTIONS (1)
  - VOMITING [None]
